FAERS Safety Report 5191037-6 (Version None)
Quarter: 2006Q4

REPORT INFORMATION
  Report Type: 
  Country: None (occurrence: None)
  Receive Date: 20061218
  Receipt Date: 20061201
  Transmission Date: 20070319
  Serious: Yes (Hospitalization)
  Sender: FDA-Public Use
  Company Number: DE-2006-038290

PATIENT
  Age: 39 Year
  Sex: Female

DRUGS (1)
  1. YASMIN [Suspect]
     Dosage: ORAL
     Route: 048
     Dates: start: 20030301, end: 20060401

REACTIONS (12)
  - ANTITHROMBIN III DEFICIENCY [None]
  - APHASIA [None]
  - BRAIN STEM INFARCTION [None]
  - CEREBRAL ARTERY STENOSIS [None]
  - CEREBRAL INFARCTION [None]
  - GENE MUTATION [None]
  - HYPERHOMOCYSTEINAEMIA [None]
  - HYPERTRIGLYCERIDAEMIA [None]
  - HYPOAESTHESIA [None]
  - PROTEIN S DEFICIENCY [None]
  - SPEECH DISORDER [None]
  - VERTIGO [None]
